FAERS Safety Report 5628058-2 (Version None)
Quarter: 2008Q1

REPORT INFORMATION
  Report Type: 
  Country: None (occurrence: None)
  Receive Date: 20080215
  Receipt Date: 20070410
  Transmission Date: 20080703
  Serious: Yes (Hospitalization, Other)
  Sender: FDA-Public Use
  Company Number: US-ASTRAZENECA-2007UW02195

PATIENT
  Age: 14945 Day
  Sex: Male
  Weight: 143.2 kg

DRUGS (1)
  1. SEROQUEL [Suspect]
     Indication: MAJOR DEPRESSION
     Dosage: 25 MG - 75 MG
     Route: 048
     Dates: start: 20040101

REACTIONS (2)
  - CORONARY ARTERIAL STENT INSERTION [None]
  - TYPE 2 DIABETES MELLITUS [None]
